FAERS Safety Report 8461763-1 (Version None)
Quarter: 2012Q2

REPORT INFORMATION
  Report Type: 
  Country: None (occurrence: None)
  Receive Date: 20120625
  Receipt Date: 20120614
  Transmission Date: 20120825
  Serious: Yes (Life-Threatening)
  Sender: FDA-Public Use
  Company Number: FR-JNJFOC-20120607692

PATIENT
  Age: 64 Year
  Sex: Male

DRUGS (7)
  1. REMICADE [Suspect]
     Indication: RHEUMATOID ARTHRITIS
     Route: 042
     Dates: start: 20100511, end: 20120314
  2. ZOLEDRONOC ACID [Concomitant]
     Route: 065
  3. CACIT D3 [Concomitant]
     Route: 065
  4. ARAVA [Suspect]
     Indication: RHEUMATOID ARTHRITIS
     Route: 065
     Dates: start: 20040401, end: 20120314
  5. PREDNISONE TAB [Concomitant]
     Indication: RHEUMATOID ARTHRITIS
     Route: 065
     Dates: start: 19960101
  6. FOSAMAX [Concomitant]
     Route: 065
  7. PANTOPRAZOLE SODIUM [Concomitant]
     Route: 065

REACTIONS (1)
  - PROSTATE CANCER [None]
